FAERS Safety Report 4440983-7 (Version None)
Quarter: 2004Q3

REPORT INFORMATION
  Report Type: 
  Country: None (occurrence: None)
  Receive Date: 20040728
  Receipt Date: 20040427
  Transmission Date: 20050211
  Serious: No
  Sender: FDA-Public Use
  Company Number: USA040465061

PATIENT
  Age: 23 Year
  Sex: Male
  Weight: 71 kg

DRUGS (1)
  1. STRATTERA [Suspect]
     Indication: ATTENTION DEFICIT/HYPERACTIVITY DISORDER
     Dosage: 80 MG DAY
     Dates: start: 20031124

REACTIONS (7)
  - ANXIETY [None]
  - CONFUSIONAL STATE [None]
  - HYPERHIDROSIS [None]
  - NASOPHARYNGITIS [None]
  - TACHYCARDIA [None]
  - TREMOR [None]
  - URINARY RETENTION [None]
